FAERS Safety Report 7336076-1 (Version None)
Quarter: 2011Q1

REPORT INFORMATION
  Report Type: 
  Country: None (occurrence: None)
  Receive Date: 20110307
  Receipt Date: 20110221
  Transmission Date: 20110831
  Serious: Yes (Hospitalization)
  Sender: FDA-Public Use
  Company Number: GB-ELI_LILLY_AND_COMPANY-GB201007001182

PATIENT
  Sex: Female

DRUGS (6)
  1. PEMETREXED [Suspect]
     Dosage: DAY 1 EVERY 21 DAYS
     Route: 042
     Dates: start: 20100609
  2. PEMETREXED [Suspect]
     Indication: NON-SMALL CELL LUNG CANCER
     Dosage: 500 MG/M2, ON DAY 1 EVERY 21 DAYS
     Route: 042
  3. CISPLATIN [Suspect]
     Indication: NON-SMALL CELL LUNG CANCER
     Dosage: 75 MG/M2, ON DAY 1 EVERY 21 DAYS
     Route: 042
  4. VITAMIN B-12 [Concomitant]
     Indication: PROPHYLAXIS
     Dates: start: 20100609, end: 20100609
  5. FOLIC ACID [Concomitant]
     Indication: PROPHYLAXIS
     Dates: start: 20100602
  6. DEXAMETHASONE [Concomitant]
     Indication: PROPHYLAXIS
     Dates: start: 20100608, end: 20100610

REACTIONS (2)
  - PLEURITIC PAIN [None]
  - DYSPNOEA [None]
